FAERS Safety Report 16491925 (Version 6)
Quarter: 2025Q3

REPORT INFORMATION
  Report Type: Spontaneous
  Country: EU (occurrence: EU)
  Receive Date: 20190628
  Receipt Date: 20250813
  Transmission Date: 20251020
  Serious: Yes (Hospitalization, Disabling, Other)
  Sender: AUROBINDO
  Company Number: EU-NOVPHSZ-PHHY2019DE121533

PATIENT
  Age: 56 Year
  Sex: Female

DRUGS (13)
  1. LEVETIRACETAM [Suspect]
     Active Substance: LEVETIRACETAM
     Indication: Glioblastoma multiforme
     Dosage: 500 MILLIGRAM, ONCE A DAY
     Route: 048
  2. LEVETIRACETAM [Suspect]
     Active Substance: LEVETIRACETAM
     Indication: Epilepsy
     Route: 065
  3. LEVETIRACETAM [Suspect]
     Active Substance: LEVETIRACETAM
     Dosage: 250 MILLIGRAM, TWO TIMES A DAY
     Route: 048
  4. DEXAMETHASONE [Suspect]
     Active Substance: DEXAMETHASONE
     Indication: Glioblastoma
     Dosage: 12 MILLIGRAM, ONCE A DAY
     Route: 048
     Dates: start: 201803, end: 201804
  5. DEXAMETHASONE [Suspect]
     Active Substance: DEXAMETHASONE
     Indication: Glioblastoma multiforme
  6. METHADONE [Suspect]
     Active Substance: METHADONE HYDROCHLORIDE
     Indication: Glioblastoma
     Route: 065
  7. METHADONE [Suspect]
     Active Substance: METHADONE HYDROCHLORIDE
     Indication: Drug therapy
     Dosage: 26 MILLIGRAM, TWO TIMES A DAY
     Route: 048
     Dates: start: 2017
  8. METHADONE [Suspect]
     Active Substance: METHADONE HYDROCHLORIDE
     Indication: Glioblastoma multiforme
     Dosage: 52 MILLIGRAM, ONCE A DAY
     Route: 048
     Dates: start: 2017
  9. METHADONE [Suspect]
     Active Substance: METHADONE HYDROCHLORIDE
     Indication: Chemotherapy
     Dosage: 52 GTT DROPS, ONCE A DAY
     Route: 048
     Dates: start: 2017
  10. PANTOZOL [Suspect]
     Active Substance: PANTOPRAZOLE SODIUM
     Indication: Product used for unknown indication
     Dosage: 40 MILLIGRAM, ONCE A DAY
     Route: 065
  11. CHOLECALCIFEROL [Suspect]
     Active Substance: CHOLECALCIFEROL
     Indication: Osteoporosis
     Route: 048
  12. TEMOZOLOMIDE [Concomitant]
     Active Substance: TEMOZOLOMIDE
     Indication: Glioblastoma
     Route: 065
  13. CHOLECALCIFEROL [Concomitant]
     Active Substance: CHOLECALCIFEROL
     Indication: Osteoporosis
     Route: 048
     Dates: start: 201804

REACTIONS (25)
  - Fall [Recovered/Resolved]
  - Mobility decreased [Unknown]
  - Aphasia [Unknown]
  - Glioblastoma multiforme [Recovering/Resolving]
  - Malignant neoplasm progression [Recovering/Resolving]
  - Poor quality sleep [Unknown]
  - Dysphagia [Unknown]
  - Hemiparesis [Unknown]
  - Disturbance in attention [Not Recovered/Not Resolved]
  - Confusional state [Unknown]
  - General physical health deterioration [Unknown]
  - Weight bearing difficulty [Unknown]
  - Foot deformity [Unknown]
  - Psychomotor retardation [Unknown]
  - Restlessness [Unknown]
  - Femoral neck fracture [Recovered/Resolved]
  - White matter lesion [Unknown]
  - Fatigue [Unknown]
  - Coordination abnormal [Unknown]
  - Asthenia [Unknown]
  - Pain [Unknown]
  - Product use in unapproved indication [Unknown]
  - Gait disturbance [Unknown]
  - Femur fracture [Unknown]
  - Off label use [Unknown]

NARRATIVE: CASE EVENT DATE: 20180227
